FAERS Safety Report 15424994 (Version 1)
Quarter: 2018Q3

REPORT INFORMATION
  Report Type: Spontaneous
  Country: US (occurrence: US)
  Receive Date: 20180917
  Receipt Date: 20180917
  Transmission Date: 20181010
  Serious: Yes (Hospitalization)
  Sender: FDA-Public Use
  Company Number: None

PATIENT
  Age: 76 Year
  Sex: Male

DRUGS (21)
  1. HYDROCO/APAP [Concomitant]
     Active Substance: ACETAMINOPHEN\HYDROCODONE
  2. PREDNISONE. [Concomitant]
     Active Substance: PREDNISONE
  3. TUMS ULTRA CHW [Concomitant]
  4. TOBRAMYCIN 300MG/5ML [Suspect]
     Active Substance: TOBRAMYCIN
     Indication: RESPIRATORY DISORDER
     Route: 055
     Dates: start: 20171013
  5. DILTIAZEM. [Concomitant]
     Active Substance: DILTIAZEM
  6. TAMOXIFEN [Concomitant]
     Active Substance: TAMOXIFEN
  7. ALBUTEROL. [Concomitant]
     Active Substance: ALBUTEROL
  8. BREO ELLIPTANH [Concomitant]
  9. DULOXETINE. [Concomitant]
     Active Substance: DULOXETINE
  10. RECLAST [Concomitant]
     Active Substance: ZOLEDRONIC ACID
  11. VITAMIN D3 [Concomitant]
     Active Substance: CHOLECALCIFEROL
  12. OMPERAZOLE [Concomitant]
     Active Substance: OMEPRAZOLE
  13. PRAVASTATIN. [Concomitant]
     Active Substance: PRAVASTATIN
  14. PROAIR HFA AER [Concomitant]
  15. METOPROL SUC [Concomitant]
  16. LEVOFLOXACIN. [Concomitant]
     Active Substance: LEVOFLOXACIN
  17. RANITIDINE. [Concomitant]
     Active Substance: RANITIDINE
  18. VENLAFAXINE [Concomitant]
     Active Substance: VENLAFAXINE HYDROCHLORIDE
  19. FLUTICASONE. [Concomitant]
     Active Substance: FLUTICASONE
  20. TYLENOL 8HR [Concomitant]
     Active Substance: ACETAMINOPHEN
  21. XOLAIR [Concomitant]
     Active Substance: OMALIZUMAB

REACTIONS (1)
  - Road traffic accident [None]
